FAERS Safety Report 6032641-2 (Version None)
Quarter: 2009Q1

REPORT INFORMATION
  Report Type: 
  Country: None (occurrence: None)
  Receive Date: 20090107
  Receipt Date: 20090107
  Transmission Date: 20090719
  Serious: Yes (Other)
  Sender: FDA-Public Use
  Company Number: None

PATIENT
  Sex: Female
  Weight: 58.9676 kg

DRUGS (2)
  1. SUMITRIPTAN SUCCINATE [Suspect]
     Indication: MIGRAINE
     Dosage: 6 MG PRN CUTANEOUS
     Route: 003
     Dates: start: 20081213, end: 20081231
  2. SUMITRIPTAN SUCCINATE [Suspect]
     Indication: MIGRAINE
     Dosage: 6 MG PRN CUTANEOUS
     Route: 003
     Dates: end: 20090106

REACTIONS (4)
  - DRUG EFFECT DECREASED [None]
  - DRUG INEFFECTIVE [None]
  - NAUSEA [None]
  - PRODUCT QUALITY ISSUE [None]
